FAERS Safety Report 6128245-3 (Version None)
Quarter: 2009Q1

REPORT INFORMATION
  Report Type: 
  Country: None (occurrence: None)
  Receive Date: 20090323
  Receipt Date: 20090310
  Transmission Date: 20090719
  Serious: Yes (Other)
  Sender: FDA-Public Use
  Company Number: US-PFIZER INC-2006047663

PATIENT
  Sex: Female

DRUGS (12)
  1. PROVERA [Suspect]
     Indication: HORMONE REPLACEMENT THERAPY
     Dosage: UNK
     Route: 048
     Dates: start: 19910515, end: 19961218
  2. PROVERA [Suspect]
     Indication: MENOPAUSE
  3. PROVERA [Suspect]
     Indication: HOT FLUSH
  4. MEDROXYPROGESTERONE AND MEDROXYPROGESTERONE ACETATE [Suspect]
     Indication: HORMONE REPLACEMENT THERAPY
     Dosage: UNK
     Route: 048
     Dates: start: 19910515, end: 19961218
  5. MEDROXYPROGESTERONE AND MEDROXYPROGESTERONE ACETATE [Suspect]
     Indication: MENOPAUSE
  6. MEDROXYPROGESTERONE AND MEDROXYPROGESTERONE ACETATE [Suspect]
     Indication: HOT FLUSH
  7. PREMARIN [Suspect]
     Indication: HORMONE REPLACEMENT THERAPY
     Dosage: UNK
     Route: 065
     Dates: start: 19910515, end: 19961218
  8. PREMARIN [Suspect]
     Indication: MENOPAUSE
  9. PREMARIN [Suspect]
     Indication: HOT FLUSH
  10. PREMPRO [Suspect]
     Indication: HORMONE REPLACEMENT THERAPY
     Dosage: UNK
     Route: 065
     Dates: start: 20020101, end: 20020101
  11. PREMPRO [Suspect]
     Indication: MENOPAUSE
  12. PREMPRO [Suspect]
     Indication: HOT FLUSH

REACTIONS (1)
  - BREAST CANCER FEMALE [None]
